FAERS Safety Report 9988709 (Version 3)
Quarter: 2014Q1

REPORT INFORMATION
  Report Type: Spontaneous
  Country: IT (occurrence: None)
  Receive Date: 20131015
  Receipt Date: 20140224
  Transmission Date: 20141002
  Serious: Yes (Other)
  Sender: FDA-Public Use
  Company Number: AUR-APL-2013-08379

PATIENT
  Age: 36 Year
  Sex: Male

DRUGS (2)
  1. MIRTAZAPINE (MIRTAZAPINE) [Suspect]
     Indication: DEPRESSION
     Dosage: 60 MG, TOTAL, ORAL
     Route: 048
     Dates: start: 20130920, end: 20130920
  2. XANAX (ALPRAZOLAM) [Suspect]
     Indication: DEPRESSION
     Dosage: 3 DOSAGE FORMS, TOTAL, ORAL
     Route: 048
     Dates: start: 20130920, end: 20130920

REACTIONS (5)
  - Toxicity to various agents [None]
  - Restlessness [None]
  - Sedation [None]
  - Drug abuse [None]
  - Intentional overdose [None]
